FAERS Safety Report 24395842 (Version 1)
Quarter: 2024Q4

REPORT INFORMATION
  Report Type: Spontaneous
  Country: US (occurrence: US)
  Receive Date: 20241004
  Receipt Date: 20241004
  Transmission Date: 20250115
  Serious: No
  Sender: TEVA
  Company Number: US-TEVA-VS-3245856

PATIENT
  Sex: Female

DRUGS (1)
  1. LENALIDOMIDE [Suspect]
     Active Substance: LENALIDOMIDE
     Indication: Product used for unknown indication
     Dosage: TAKE 1 CAPSULE BY MOUTH 1 TIME A DAY IN THE MORNING FOR 21 DAYS ON THEN 14 DAYS OFF.
     Route: 048

REACTIONS (7)
  - Muscle spasms [Unknown]
  - Vomiting [Unknown]
  - Diarrhoea [Unknown]
  - Somnolence [Unknown]
  - Therapeutic response decreased [Unknown]
  - Fatigue [Unknown]
  - Product substitution issue [Unknown]
